FAERS Safety Report 9418089 (Version 3)
Quarter: 2013Q4

REPORT INFORMATION
  Report Type: Report from Study
  Country: US (occurrence: US)
  Receive Date: 20130724
  Receipt Date: 20131017
  Transmission Date: 20140711
  Serious: Yes (Other)
  Sender: FDA-Public Use
  Company Number: US-US-EMD SERONO, INC.-7225415

PATIENT
  Sex: Female
  Weight: 73 kg

DRUGS (6)
  1. REBIF [Suspect]
     Indication: MULTIPLE SCLEROSIS
     Dates: start: 20031210, end: 20101122
  2. REBIF [Suspect]
     Route: 058
     Dates: start: 20110829, end: 20120131
  3. REBIF [Suspect]
     Route: 058
     Dates: start: 20120601, end: 20121201
  4. REBIF [Suspect]
     Route: 058
     Dates: start: 20130604, end: 201309
  5. TYLENOL                            /00020001/ [Concomitant]
     Indication: PRODUCT USED FOR UNKNOWN INDICATION
  6. VICODIN [Concomitant]
     Indication: PRODUCT USED FOR UNKNOWN INDICATION

REACTIONS (6)
  - Gangrene [Recovered/Resolved]
  - Arthropathy [Unknown]
  - Joint injury [Unknown]
  - Fall [Unknown]
  - Sleep apnoea syndrome [Unknown]
  - Injection site erythema [Not Recovered/Not Resolved]
